FAERS Safety Report 5657983-1 (Version None)
Quarter: 2008Q1

REPORT INFORMATION
  Report Type: 
  Country: None (occurrence: None)
  Receive Date: 20080310
  Receipt Date: 20080305
  Transmission Date: 20080703
  Serious: Yes (Other)
  Sender: FDA-Public Use
  Company Number: PHFR2008GB00967

PATIENT
  Age: 70 Year
  Sex: Female
  Weight: 70 kg

DRUGS (6)
  1. DICLOFENAC SODIUM [Suspect]
     Indication: ANALGESIA
     Dosage: 50 MG/DAY
     Route: 048
     Dates: start: 20080115, end: 20080120
  2. GLICLAZIDE [Concomitant]
     Dosage: 80 MG, TID
     Route: 065
  3. METFORMIN HYDROCHLORIDE [Concomitant]
     Dosage: 500 MG, TID
     Route: 065
  4. ACETAMINOPHEN [Concomitant]
     Dosage: 500 MG, PRN
     Route: 065
  5. RANITIDINE [Concomitant]
     Dosage: 300 MG, QD
     Route: 065
  6. SIMVASTATIN [Concomitant]
     Dosage: 40 MG, QD
     Route: 065

REACTIONS (2)
  - URINARY RETENTION [None]
  - URINE OUTPUT DECREASED [None]
